FAERS Safety Report 25091463 (Version 1)
Quarter: 2025Q1

REPORT INFORMATION
  Report Type: Spontaneous
  Country: US (occurrence: US)
  Receive Date: 20250318
  Receipt Date: 20250318
  Transmission Date: 20250409
  Serious: No
  Sender: SANOFI AVENTIS
  Company Number: US-SA-2025SA076143

PATIENT
  Age: 20 Year
  Sex: Male

DRUGS (2)
  1. ALTUVIIIO [Suspect]
     Active Substance: EFANESOCTOCOG ALFA
  2. VONVENDI [Suspect]
     Active Substance: VON WILLEBRAND FACTOR (RECOMBINANT)

REACTIONS (2)
  - Fall [Unknown]
  - Joint injury [Unknown]

NARRATIVE: CASE EVENT DATE: 20250210
